FAERS Safety Report 8080631-0 (Version None)
Quarter: 2012Q1

REPORT INFORMATION
  Report Type: 
  Country: None (occurrence: None)
  Receive Date: 20120130
  Receipt Date: 20111007
  Transmission Date: 20120608
  Serious: Yes (Hospitalization)
  Sender: FDA-Public Use
  Company Number: ES-ROCHE-1003405

PATIENT
  Sex: Male
  Weight: 66 kg

DRUGS (7)
  1. VALSARTAN [Concomitant]
     Indication: HYPERTENSION
     Route: 048
  2. SIMVASTATIN [Concomitant]
     Indication: HYPERCHOLESTEROLAEMIA
     Route: 048
  3. FLUDARABINE PHOSPHATE [Suspect]
     Indication: CHRONIC LYMPHOCYTIC LEUKAEMIA
     Dates: start: 20110912, end: 20110914
  4. PANTOPRAZOLE [Concomitant]
     Indication: DYSPEPSIA
     Route: 048
  5. PANTOPRAZOLE [Suspect]
     Indication: CHRONIC LYMPHOCYTIC LEUKAEMIA
     Dates: start: 20110912, end: 20110914
  6. MABTHERA [Suspect]
     Indication: CHRONIC LYMPHOCYTIC LEUKAEMIA
     Dates: start: 20110912, end: 20110912
  7. FOLI DOCE [Concomitant]
     Dosage: 400/2 MG EVERY DAY
     Route: 048

REACTIONS (6)
  - ANAEMIA [None]
  - ASTHENIA [None]
  - NEUTROPENIA [None]
  - HAEMOLYSIS [None]
  - PALLOR [None]
  - DIARRHOEA INFECTIOUS [None]
